FAERS Safety Report 5142095-6 (Version None)
Quarter: 2006Q4

REPORT INFORMATION
  Report Type: 
  Country: None (occurrence: None)
  Receive Date: 20061102
  Receipt Date: 20060824
  Transmission Date: 20070319
  Serious: Yes (Other)
  Sender: FDA-Public Use
  Company Number: PHEH2006US10954

PATIENT
  Age: 82 Year
  Sex: Male

DRUGS (1)
  1. SANSERT [Suspect]

REACTIONS (2)
  - COLORECTAL CANCER RECURRENT [None]
  - PELVIC FIBROSIS [None]
